FAERS Safety Report 5865252-X (Version None)
Quarter: 2008Q3

REPORT INFORMATION
  Report Type: 
  Country: None (occurrence: None)
  Receive Date: 20080829
  Receipt Date: 20080728
  Transmission Date: 20090109
  Serious: No
  Sender: FDA-Public Use
  Company Number: US-ABBOTT-08P-163-0466212-00

PATIENT
  Sex: Male
  Weight: 77.18 kg

DRUGS (4)
  1. SIMCOR [Suspect]
     Indication: BLOOD TRIGLYCERIDES INCREASED
     Dosage: 100/20MG
     Route: 048
     Dates: start: 20080717, end: 20080717
  2. SIMCOR [Suspect]
     Dosage: 500/20MG
     Route: 048
     Dates: start: 20080714, end: 20080717
  3. SIMCOR [Suspect]
     Dosage: 1000/20MG
     Route: 048
     Dates: start: 20080721
  4. LANSOPRAZOLE [Concomitant]
     Indication: DRUG USE FOR UNKNOWN INDICATION

REACTIONS (1)
  - RASH [None]
